FAERS Safety Report 7552033-4 (Version None)
Quarter: 2011Q2

REPORT INFORMATION
  Report Type: 
  Country: None (occurrence: None)
  Receive Date: 20110616
  Receipt Date: 20110608
  Transmission Date: 20111010
  Serious: Yes (Other)
  Sender: FDA-Public Use
  Company Number: US-US-EMD SERONO, INC.-7060548

PATIENT
  Sex: Female
  Weight: 88 kg

DRUGS (2)
  1. REBIF [Suspect]
     Indication: MULTIPLE SCLEROSIS
     Route: 058
     Dates: start: 20070313
  2. INHALED STEROIDS [Concomitant]

REACTIONS (3)
  - SPLENOMEGALY [None]
  - HYPERHIDROSIS [None]
  - HEPATIC STEATOSIS [None]
